FAERS Safety Report 7262156-5 (Version None)
Quarter: 2011Q1

REPORT INFORMATION
  Report Type: 
  Country: None (occurrence: None)
  Receive Date: 20110130
  Receipt Date: 20101215
  Transmission Date: 20110831
  Serious: No
  Sender: FDA-Public Use
  Company Number: US-ABBOTT-10P-163-0691619-00

PATIENT
  Sex: Female
  Weight: 59.02 kg

DRUGS (7)
  1. METHOTREXATE [Concomitant]
     Indication: CROHN'S DISEASE
  2. PRILOSEC [Concomitant]
     Indication: CROHN'S DISEASE
  3. PREDNISONE [Concomitant]
     Indication: CROHN'S DISEASE
  4. IRON [Concomitant]
     Indication: MINERAL SUPPLEMENTATION
  5. VITAMIN D [Concomitant]
     Indication: VITAMIN SUPPLEMENTATION
  6. HUMIRA [Suspect]
     Indication: CROHN'S DISEASE
     Dates: start: 20080101
  7. FOLIC ACID [Concomitant]
     Indication: VITAMIN SUPPLEMENTATION

REACTIONS (4)
  - DEVICE MALFUNCTION [None]
  - FLUID RETENTION [None]
  - ABDOMINAL DISTENSION [None]
  - WEIGHT INCREASED [None]
